FAERS Safety Report 4887708-9 (Version None)
Quarter: 2006Q1

REPORT INFORMATION
  Report Type: 
  Country: None (occurrence: None)
  Receive Date: 20060118
  Receipt Date: 20051222
  Transmission Date: 20060701
  Serious: Yes (Hospitalization)
  Sender: FDA-Public Use
  Company Number: 220054

PATIENT
  Age: 62 Year
  Sex: Female
  Weight: 67 kg

DRUGS (9)
  1. BEVACIZUMAB [Suspect]
     Indication: METASTATIC RENAL CELL CARCINOMA
     Dosage: Q2W, INTRAVENOUS
     Route: 042
     Dates: start: 20050616, end: 20050922
  2. BEVACIZUMAB [Suspect]
  3. INTERFERON ALFA-2A (INTERFERON ALFA-2A) [Suspect]
     Indication: METASTATIC RENAL CELL CARCINOMA
     Dosage: 9 MIU, 3/WEEK, SUBCUTANEOUS
     Route: 058
     Dates: start: 20050616, end: 20050928
  4. DEXAMETHASONE [Concomitant]
  5. ACETAMINOPHEN [Concomitant]
  6. DOMPERIDONE (DOMPERIDONE) [Concomitant]
  7. DELORAZEPAM (DELORAZEPAM) [Concomitant]
  8. OMEPRAZOLE [Concomitant]
  9. VERPAMIL (VERAPAMIL HYDROCHLORIDE) [Concomitant]

REACTIONS (2)
  - LEUKOENCEPHALOPATHY [None]
  - PERFORMANCE STATUS DECREASED [None]
